FAERS Safety Report 8993278 (Version 2)
Quarter: 2013Q2

REPORT INFORMATION
  Report Type: Report from Study
  Country: HR (occurrence: HR)
  Receive Date: 20130102
  Receipt Date: 20130402
  Transmission Date: 20140414
  Serious: Yes (Hospitalization)
  Sender: FDA-Public Use
  Company Number: HR-PFIZER INC-2012325940

PATIENT
  Age: 51 Year
  Sex: Female
  Weight: 83 kg

DRUGS (5)
  1. TOFACITINIB CITRATE [Suspect]
     Indication: RHEUMATOID ARTHRITIS
     Dosage: 10 MG, 2X/DAY
     Route: 048
     Dates: start: 20120125
  2. DECORTIN [Concomitant]
     Indication: RHEUMATOID ARTHRITIS
     Dosage: UNK
     Dates: start: 20090122
  3. METHOTREXATE [Concomitant]
     Dosage: UNK
     Dates: start: 20090707
  4. FOLACIN [Concomitant]
     Dosage: UNK
     Dates: start: 20050503
  5. VOLTAREN [Concomitant]
     Dosage: UNK
     Dates: start: 20090122

REACTIONS (1)
  - Menometrorrhagia [Recovered/Resolved]
